FAERS Safety Report 18637587 (Version 1)
Quarter: 2020Q4

REPORT INFORMATION
  Report Type: Spontaneous
  Country: US (occurrence: US)
  Receive Date: 20201218
  Receipt Date: 20201218
  Transmission Date: 20210114
  Serious: Yes (Hospitalization)
  Sender: FDA-Public Use
  Company Number: US-IRONWOOD PHARMACEUTICALS, INC.-IRWD2017000344

PATIENT

DRUGS (2)
  1. ZURAMPIC [Suspect]
     Active Substance: LESINURAD
     Indication: GOUT
     Dosage: 200 MG, QD
     Route: 048
     Dates: start: 201612
  2. ALLOPURINOL. [Concomitant]
     Active Substance: ALLOPURINOL
     Indication: PRODUCT USED FOR UNKNOWN INDICATION
     Dosage: UNK
     Route: 065

REACTIONS (3)
  - Circumstance or information capable of leading to medication error [Unknown]
  - Pain [Unknown]
  - Nephrolithiasis [Unknown]
